FAERS Safety Report 26007438 (Version 1)
Quarter: 2025Q4

REPORT INFORMATION
  Report Type: Spontaneous
  Country: CA (occurrence: CA)
  Receive Date: 20251106
  Receipt Date: 20251106
  Transmission Date: 20260117
  Serious: Yes (Other)
  Sender: PFIZER
  Company Number: CA-PFIZER INC-202500126254

PATIENT
  Age: 45 Year
  Sex: Female
  Weight: 93.878 kg

DRUGS (3)
  1. METHOTREXATE SODIUM [Suspect]
     Active Substance: METHOTREXATE SODIUM
     Indication: Psoriatic arthropathy
     Dosage: 1 DF, DOSAGE INFO UNKNOWN
     Route: 065
     Dates: start: 2020, end: 2022
  2. METHOTREXATE SODIUM [Suspect]
     Active Substance: METHOTREXATE SODIUM
     Dosage: 20 MG, WEEKLY
     Route: 065
     Dates: start: 2020, end: 2022
  3. ARAVA [Concomitant]
     Active Substance: LEFLUNOMIDE
     Dosage: 1 DF (UNKNOWN DOSAGE INFO)
     Dates: start: 2022

REACTIONS (3)
  - Liver injury [Unknown]
  - Liver disorder [Unknown]
  - Hepatic enzyme increased [Unknown]
